FAERS Safety Report 7160557-7 (Version None)
Quarter: 2010Q4

REPORT INFORMATION
  Report Type: 
  Country: None (occurrence: None)
  Receive Date: 20101214
  Receipt Date: 20100322
  Transmission Date: 20110411
  Serious: No
  Sender: FDA-Public Use
  Company Number: US-AMGEN-TCS376180

PATIENT

DRUGS (4)
  1. ENBREL [Suspect]
     Indication: PSORIASIS
     Dosage: 50 MG, 2 TIMES/WK
     Route: 058
     Dates: start: 20091109, end: 20091118
  2. FLUCINOLONE ACETONIDE [Concomitant]
     Dosage: UNK UNK, UNK
     Route: 061
     Dates: start: 20091005
  3. PROTOPIC [Concomitant]
     Dosage: UNK UNK, UNK
     Dates: start: 20090923
  4. FLUOCINONIDE [Concomitant]
     Dosage: UNK UNK, UNK
     Dates: start: 20090923

REACTIONS (3)
  - INJECTION SITE ERYTHEMA [None]
  - RASH PRURITIC [None]
  - SKIN SWELLING [None]
